FAERS Safety Report 11184585 (Version 1)
Quarter: 2015Q2

REPORT INFORMATION
  Report Type: Spontaneous
  Country: US (occurrence: None)
  Receive Date: 20150611
  Receipt Date: 20150611
  Transmission Date: 20150821
  Serious: No
  Sender: FDA-Public Use
  Company Number: None

PATIENT
  Age: 26 Year
  Sex: Female

DRUGS (1)
  1. HUMIRA [Suspect]
     Active Substance: ADALIMUMAB
     Dosage: 40 MG QOW SQ
     Route: 058
     Dates: start: 20150128, end: 20150609

REACTIONS (2)
  - No therapeutic response [None]
  - Dizziness [None]

NARRATIVE: CASE EVENT DATE: 20150609
